FAERS Safety Report 25590812 (Version 1)
Quarter: 2025Q3

REPORT INFORMATION
  Report Type: Report from Study
  Country: CA (occurrence: CA)
  Receive Date: 20250722
  Receipt Date: 20250722
  Transmission Date: 20251020
  Serious: Yes (Other)
  Sender: ALEXION PHARMACEUTICALS
  Company Number: CA-AstraZeneca-CH-00908554A

PATIENT
  Age: 7 Year
  Sex: Female
  Weight: 19.2 kg

DRUGS (14)
  1. SELUMETINIB [Suspect]
     Active Substance: SELUMETINIB
     Indication: Neurofibromatosis
     Dosage: 20 MILLIGRAM, BID
     Dates: start: 20210426
  2. SELUMETINIB [Suspect]
     Active Substance: SELUMETINIB
     Dosage: 25 MILLIGRAM/SQ. METER, BID
     Dates: start: 20210519
  3. SELUMETINIB [Suspect]
     Active Substance: SELUMETINIB
  4. VITAMIN D3 [Concomitant]
     Active Substance: CHOLECALCIFEROL
     Dosage: UNK, EVERY MORNING
  5. GABAPENTIN [Concomitant]
     Active Substance: GABAPENTIN
     Dosage: 100 MILLIGRAM, TID
  6. Iron complex [Concomitant]
     Dosage: UNK, QD, IRON POWDER DILUTED IN SOLUTION
  7. ONDANSETRON [Concomitant]
     Active Substance: ONDANSETRON
     Indication: Nausea
     Dosage: 4 MILLIGRAM, Q8H PRN
  8. ONDANSETRON [Concomitant]
     Active Substance: ONDANSETRON
     Indication: Vomiting
  9. POLYETHYLENE GLYCOL 3350 [Concomitant]
     Active Substance: POLYETHYLENE GLYCOL 3350
     Dosage: 7 GRAM, QD, DISSOLVE POWDER BY STIRRING DOSE INTO 120 TO 250 ML OF BEVERAGE PRIOR TO CONSUMPTION
  10. RUPATADINE FUMARATE [Concomitant]
     Active Substance: RUPATADINE FUMARATE
     Dosage: 5 MILLIGRAM, QD, PRN
  11. LANSOPRAZOLE [Concomitant]
     Active Substance: LANSOPRAZOLE
     Dosage: 15 MILLIGRAM, QD, DISSOLVE ON TONGUE BEFORE SWALLOWING PARTICLES; DO NOT CHEW, CUT, BREAK, OR SWALLOW WHOLE.
  12. LIDOCAINE [Concomitant]
     Active Substance: LIDOCAINE
     Indication: Pain
     Dosage: UNK, QID, PRN
  13. LORAZEPAM [Concomitant]
     Active Substance: LORAZEPAM
     Indication: Anxiety
  14. TRAZODONE [Concomitant]
     Active Substance: TRAZODONE HYDROCHLORIDE
     Dosage: 50 MILLIGRAM, QHS

REACTIONS (8)
  - Iron deficiency anaemia [Unknown]
  - Atelectasis [Unknown]
  - Pain [Unknown]
  - Constipation [Recovering/Resolving]
  - Sleep disorder [Recovering/Resolving]
  - Language disorder [Unknown]
  - Attention deficit hyperactivity disorder [Recovering/Resolving]
  - Hirsutism [Unknown]

NARRATIVE: CASE EVENT DATE: 20250407
